FAERS Safety Report 12899930 (Version 1)
Quarter: 2016Q4

REPORT INFORMATION
  Report Type: Spontaneous
  Country: US (occurrence: US)
  Receive Date: 20161101
  Receipt Date: 20161101
  Transmission Date: 20170207
  Serious: No
  Sender: FDA-Public Use
  Company Number: US-FERRINGPH-2015FE03811

PATIENT
  Age: 26 Year
  Sex: Female

DRUGS (7)
  1. METFORMIN [Concomitant]
     Active Substance: METFORMIN HYDROCHLORIDE
  2. AMLODIPINE [Concomitant]
     Active Substance: AMLODIPINE BESYLATE
  3. DDAVP [Suspect]
     Active Substance: DESMOPRESSIN ACETATE
     Indication: DIABETES MELLITUS
     Dosage: 1 TABLET IN THE MORNING AND 2 TABLETS IN THE EVENING
     Route: 048
     Dates: start: 20151021, end: 20151029
  4. LOSARTAN. [Concomitant]
     Active Substance: LOSARTAN
  5. ZOFRAN [Concomitant]
     Active Substance: ONDANSETRON HYDROCHLORIDE
     Indication: NAUSEA
  6. LANTUS [Concomitant]
     Active Substance: INSULIN GLARGINE
  7. HUMULIN N [Concomitant]
     Active Substance: INSULIN HUMAN

REACTIONS (3)
  - Headache [Not Recovered/Not Resolved]
  - Drug ineffective [Not Recovered/Not Resolved]
  - Nausea [Unknown]

NARRATIVE: CASE EVENT DATE: 20151021
